FAERS Safety Report 6892388-7 (Version None)
Quarter: 2010Q3

REPORT INFORMATION
  Report Type: 
  Country: None (occurrence: None)
  Receive Date: 20100731
  Receipt Date: 20080425
  Transmission Date: 20110219
  Serious: No
  Sender: FDA-Public Use
  Company Number: US-PFIZER INC-2008036992

PATIENT
  Age: 78 Year
  Sex: Female

DRUGS (1)
  1. NEURONTIN [Suspect]
     Indication: MULTIPLE SCLEROSIS

REACTIONS (3)
  - PAIN IN JAW [None]
  - STOMATITIS [None]
  - WRONG TECHNIQUE IN DRUG USAGE PROCESS [None]
